FAERS Safety Report 6294823-4 (Version None)
Quarter: 2009Q3

REPORT INFORMATION
  Report Type: 
  Country: None (occurrence: None)
  Receive Date: 20090803
  Receipt Date: 20090723
  Transmission Date: 20100115
  Serious: Yes (Hospitalization, Other)
  Sender: FDA-Public Use
  Company Number: US-BAYER-US-2006-022048

PATIENT
  Age: 60 Year
  Sex: Female

DRUGS (1)
  1. BETASERON [Suspect]
     Indication: RELAPSING-REMITTING MULTIPLE SCLEROSIS
     Dosage: TOTAL DAILY DOSE: 8 MIU
     Route: 058
     Dates: start: 19991020

REACTIONS (5)
  - ARTHRITIS [None]
  - INJECTION SITE HAEMATOMA [None]
  - INJECTION SITE NECROSIS [None]
  - INJECTION SITE RASH [None]
  - THYROID DISORDER [None]
